FAERS Safety Report 5660759-2 (Version None)
Quarter: 2008Q1

REPORT INFORMATION
  Report Type: 
  Country: None (occurrence: None)
  Receive Date: 20080311
  Receipt Date: 20080303
  Transmission Date: 20080703
  Serious: Yes (Hospitalization)
  Sender: FDA-Public Use
  Company Number: US-ELI_LILLY_AND_COMPANY-US200802000649

PATIENT
  Sex: Female

DRUGS (7)
  1. HUMATROPE [Suspect]
     Indication: GROWTH HORMONE DEFICIENCY
     Dosage: UNK, UNK
     Dates: start: 20020101, end: 20080101
  2. PREMARIN [Concomitant]
     Dates: start: 20020101
  3. DIOVAN [Concomitant]
     Dates: start: 19980101
  4. SYNTHROID [Concomitant]
     Dates: start: 20020101
  5. EFFEXOR [Concomitant]
     Dates: start: 20020101
  6. TRAZODONE HCL [Concomitant]
     Dates: start: 20020101
  7. REQUIP [Concomitant]
     Dates: start: 20060101

REACTIONS (1)
  - PANCREATIC CARCINOMA [None]
